FAERS Safety Report 12856225 (Version 3)
Quarter: 2017Q1

REPORT INFORMATION
  Report Type: Spontaneous
  Country: US (occurrence: US)
  Receive Date: 20161018
  Receipt Date: 20170203
  Transmission Date: 20170428
  Serious: No
  Sender: FDA-Public Use
  Company Number: US-HORIZON-RAV-0203-2016

PATIENT
  Age: 24 Year
  Sex: Male

DRUGS (4)
  1. NOVOLOG [Concomitant]
     Active Substance: INSULIN ASPART
     Dosage: INCREASED TO 15 (UNIT UNKNOWN) ON 19-DEC-2016
  2. METFORMIN [Concomitant]
     Active Substance: METFORMIN HYDROCHLORIDE
  3. LANTUS [Concomitant]
     Active Substance: INSULIN GLARGINE
     Dosage: INCREASED TO 40 (UNIT UNKNOWN) ON 19-DEC-2016
  4. RAVICTI [Suspect]
     Active Substance: GLYCEROL PHENYLBUTYRATE
     Indication: ARGININOSUCCINATE LYASE DEFICIENCY
     Dosage: 5.8 ML TID
     Dates: start: 20130604

REACTIONS (3)
  - Glycosylated haemoglobin increased [Recovering/Resolving]
  - Thyroid function test abnormal [Unknown]
  - Blood glucose increased [Unknown]
